FAERS Safety Report 15167898 (Version 1)
Quarter: 2018Q3

REPORT INFORMATION
  Report Type: Spontaneous
  Country: US (occurrence: US)
  Receive Date: 20180621
  Receipt Date: 20180621
  Transmission Date: 20181010
  Serious: Yes (Life-Threatening, Hospitalization)
  Sender: FDA-Public Use
  Company Number: None

PATIENT
  Age: 5 Year
  Sex: Male
  Weight: 18 kg

DRUGS (1)
  1. OPEN BIOME FMT 30ML SOLUTION [Suspect]
     Active Substance: FECAL MICROBIOTA
     Dates: start: 20180522

REACTIONS (4)
  - Probiotic therapy [None]
  - Pyrexia [None]
  - Device related infection [None]
  - Sepsis [None]

NARRATIVE: CASE EVENT DATE: 20180524
